FAERS Safety Report 4870261-3 (Version None)
Quarter: 2005Q4

REPORT INFORMATION
  Report Type: 
  Country: None (occurrence: None)
  Receive Date: 20051228
  Receipt Date: 20051215
  Transmission Date: 20060501
  Serious: Yes (Death, Other)
  Sender: FDA-Public Use
  Company Number: GBR-2005-0001902

PATIENT
  Age: 49 Year
  Sex: Male

DRUGS (5)
  1. MORPHINE SULFATE [Suspect]
  2. DIHYDROCODEINE BITARTRATE INJ [Suspect]
  3. AMITRIPTYLINE HYDROCHLORIDE [Suspect]
     Indication: DEPRESSION
     Dosage: ORAL
     Route: 048
  4. NORTRIPTYLINE (NORTRIPTYLINE) [Suspect]
  5. HEROIN (DIAMORPHINE) [Concomitant]

REACTIONS (2)
  - DRUG INTERACTION [None]
  - INTENTIONAL DRUG MISUSE [None]
